FAERS Safety Report 9519868 (Version 1)
Quarter: 2013Q3

REPORT INFORMATION
  Report Type: Spontaneous
  Country: MX (occurrence: MX)
  Receive Date: 20130912
  Receipt Date: 20130912
  Transmission Date: 20140515
  Serious: Yes (Hospitalization)
  Sender: FDA-Public Use
  Company Number: MX-ROXANE LABORATORIES, INC.-2013-RO-01506RO

PATIENT
  Age: 61 Year
  Sex: Female

DRUGS (5)
  1. FUROSEMIDE [Suspect]
     Indication: NEPHROPATHY
     Dosage: 120 MG
  2. GLIBENCLAMIDE [Suspect]
     Indication: TYPE 2 DIABETES MELLITUS
     Dosage: 5 MG
  3. METFORMIN [Suspect]
     Indication: TYPE 2 DIABETES MELLITUS
     Dosage: 1500 MG
  4. METOPROLOL [Suspect]
     Indication: HYPERTENSION
     Dosage: 200 MG
  5. NIFEDIPINE [Suspect]
     Indication: HYPERTENSION
     Dosage: 60 MG

REACTIONS (4)
  - Hyponatraemia [Recovered/Resolved]
  - Congestive cardiomyopathy [Unknown]
  - Hypervolaemia [Unknown]
  - Pleural effusion [Unknown]
